FAERS Safety Report 8152158-9 (Version None)
Quarter: 2012Q1

REPORT INFORMATION
  Report Type: 
  Country: None (occurrence: None)
  Receive Date: 20120214
  Receipt Date: 20120131
  Transmission Date: 20120608
  Serious: Yes (Hospitalization)
  Sender: FDA-Public Use
  Company Number: JP-2012-10235

PATIENT
  Age: 62 Year
  Sex: Male

DRUGS (28)
  1. ALDACTONE [Concomitant]
  2. SAMSCA [Suspect]
     Indication: CARDIAC FAILURE
     Dosage: 7.5; 15  MG, QAM (AT AROUND 0730), ORAL
     Route: 048
     Dates: start: 20111230, end: 20120106
  3. SAMSCA [Suspect]
     Indication: CARDIAC FAILURE
     Dosage: 7.5; 15  MG, QAM (AT AROUND 0730), ORAL
     Route: 048
     Dates: start: 20111222, end: 20111229
  4. BISOPROLOL FUMARATE [Concomitant]
  5. DOBUPUM (DOBUTAMINE HYDROCHLORIDE) [Concomitant]
  6. ZETIA [Concomitant]
  7. LASIX [Concomitant]
  8. ARGAMATE (CALCIUM  POLYSTYRENE SULFONATE) [Concomitant]
  9. LIVALO [Concomitant]
  10. MAGMITT (MAGNESIUM OXIDE) [Concomitant]
  11. PLAVIX [Concomitant]
  12. HEPARIN NA LOCK (HEPARIN SODIUM) [Concomitant]
  13. FAMOTIDINE [Concomitant]
  14. PERINDOPRIL ERBUMINE [Concomitant]
  15. LANSOPRAZOLE [Concomitant]
  16. BAYASPIRIN (ACETYLSALICULIC ACID) [Concomitant]
  17. NOVO HEPARIN (HEPARIN SODIUM) [Concomitant]
  18. DEXTROSE 5% [Concomitant]
  19. MILRILA (MILRINONE) [Concomitant]
  20. VITAJECT (MULTIPLE VITAMIN FOR TOTAL PARENTERAL NUTRITION) [Concomitant]
  21. AMIODARONE HCL [Concomitant]
  22. SOLDEM 6 (POSTOPERATIVE RECOVERY MEDIUM) [Concomitant]
  23. DOBUTREX [Concomitant]
  24. KAKODIN (DOPAMINE HYDROCHLORIDE) [Concomitant]
  25. CARVEDILOL [Concomitant]
  26. VOLVIX (MAGANESE CHLORIDE  ZINC SULFATE HYDRATE COMBINED DRUG) [Concomitant]
  27. BIOFERMIN (LACTOMIN) [Concomitant]
  28. INTRALIPOS (GLUCINE MAX SEED OIL) [Concomitant]

REACTIONS (4)
  - BLOOD POTASSIUM ABNORMAL [None]
  - CARDIAC FAILURE CONGESTIVE [None]
  - HYPERNATRAEMIA [None]
  - CONDITION AGGRAVATED [None]
